FAERS Safety Report 23275503 (Version 1)
Quarter: 2023Q4

REPORT INFORMATION
  Report Type: Spontaneous
  Country: CA (occurrence: CA)
  Receive Date: 20231208
  Receipt Date: 20231208
  Transmission Date: 20240110
  Serious: Yes (Other)
  Sender: FDA-Public Use
  Company Number: CA-VIIV HEALTHCARE LIMITED-CA2023069945

PATIENT
  Age: 32 Year
  Sex: Male

DRUGS (8)
  1. RILPIVIRINE [Suspect]
     Active Substance: RILPIVIRINE
     Indication: HIV infection
     Dosage: UNK, Q2M (600MG/3ML) CABOTEGRAVIR INJECTION AND (900MG/3ML) RILPIVIRINE INJECTION, BATCH PN5Y EXP DA
     Route: 030
     Dates: start: 20230501
  2. RILPIVIRINE [Suspect]
     Active Substance: RILPIVIRINE
     Dosage: UNK, Q2M (600MG/3ML) CABOTEGRAVIR INJECTION AND (900MG/3ML) RILPIVIRINE INJECTION
     Route: 030
     Dates: start: 20230501
  3. RILPIVIRINE [Suspect]
     Active Substance: RILPIVIRINE
     Dosage: UNK, Q2M (600MG/3ML) CABOTEGRAVIR INJECTION AND (900MG/3ML) RILPIVIRINE INJECTION
     Route: 030
     Dates: start: 2023
  4. RILPIVIRINE [Suspect]
     Active Substance: RILPIVIRINE
     Dosage: UNK, Q2M (600MG/3ML) CABOTEGRAVIR INJECTION AND (900MG/3ML) RILPIVIRINE INJECTION
     Route: 030
     Dates: start: 2023
  5. CABOTEGRAVIR [Suspect]
     Active Substance: CABOTEGRAVIR
     Indication: HIV infection
     Dosage: UNK, Q2M (600MG/3ML) CABOTEGRAVIR INJECTION AND (900MG/3ML) RILPIVIRINE INJECTION
     Route: 030
     Dates: start: 20230501
  6. CABOTEGRAVIR [Suspect]
     Active Substance: CABOTEGRAVIR
     Dosage: UNK, Q2M (600MG/3ML) CABOTEGRAVIR INJECTION AND (900MG/3ML) RILPIVIRINE INJECTION
     Route: 030
     Dates: start: 20230501
  7. CABOTEGRAVIR [Suspect]
     Active Substance: CABOTEGRAVIR
     Dosage: UNK, Q2M (600MG/3ML) CABOTEGRAVIR INJECTION AND (900MG/3ML) RILPIVIRINE INJECTION
     Route: 030
     Dates: start: 2023
  8. CABOTEGRAVIR [Suspect]
     Active Substance: CABOTEGRAVIR
     Dosage: UNK, Q2M (600MG/3ML) CABOTEGRAVIR INJECTION AND (900MG/3ML) RILPIVIRINE INJECTION
     Route: 030
     Dates: start: 2023

REACTIONS (19)
  - Pneumonia [Recovered/Resolved]
  - Dizziness [Recovered/Resolved]
  - Arthralgia [Recovering/Resolving]
  - Headache [Not Recovered/Not Resolved]
  - Pain in extremity [Not Recovered/Not Resolved]
  - Pain [Not Recovered/Not Resolved]
  - Gastrointestinal disorder [Not Recovered/Not Resolved]
  - Fatigue [Not Recovered/Not Resolved]
  - Night sweats [Not Recovered/Not Resolved]
  - Dyspnoea [Not Recovered/Not Resolved]
  - Dyspepsia [Not Recovered/Not Resolved]
  - Weight increased [Not Recovered/Not Resolved]
  - Groin pain [Not Recovered/Not Resolved]
  - Gastrointestinal pain [Not Recovered/Not Resolved]
  - Bronchitis [Recovered/Resolved]
  - Injection site coldness [Recovered/Resolved]
  - Pruritus [Unknown]
  - Injection site warmth [Recovered/Resolved]
  - Rash macular [Not Recovered/Not Resolved]

NARRATIVE: CASE EVENT DATE: 20230101
